FAERS Safety Report 6188593-8 (Version None)
Quarter: 2009Q2

REPORT INFORMATION
  Report Type: 
  Country: None (occurrence: None)
  Receive Date: 20090513
  Receipt Date: 20090505
  Transmission Date: 20091009
  Serious: Yes (Hospitalization)
  Sender: FDA-Public Use
  Company Number: A0783554A

PATIENT
  Age: 43 Year
  Sex: Female

DRUGS (2)
  1. AUGMENTIN '125' [Suspect]
     Route: 048
  2. COPAXONE [Suspect]
     Indication: MULTIPLE SCLEROSIS
     Route: 058
     Dates: start: 20090107

REACTIONS (3)
  - DEHYDRATION [None]
  - JAUNDICE [None]
  - NAUSEA [None]
